FAERS Safety Report 14665960 (Version 1)
Quarter: 2018Q1

REPORT INFORMATION
  Report Type: Spontaneous
  Country: GB (occurrence: GB)
  Receive Date: 20180321
  Receipt Date: 20180321
  Transmission Date: 20180509
  Serious: Yes (Other)
  Sender: FDA-Public Use
  Company Number: GB-BIOMARINAP-GB-2018-117511

PATIENT
  Sex: Female
  Weight: 16.8 kg

DRUGS (2)
  1. NAGLAZYME [Suspect]
     Active Substance: GALSULFASE
     Indication: MUCOPOLYSACCHARIDOSIS VI
     Dosage: 15 MG, QOW
     Route: 042
     Dates: start: 20150323
  2. NAGLAZYME [Suspect]
     Active Substance: GALSULFASE
     Dosage: 20 MG, QOW
     Route: 042
     Dates: start: 20150323

REACTIONS (3)
  - Mobility decreased [Unknown]
  - Spinal disorder [Unknown]
  - Hand deformity [Unknown]
